FAERS Safety Report 8419376-3 (Version None)
Quarter: 2012Q2

REPORT INFORMATION
  Report Type: 
  Country: None (occurrence: None)
  Receive Date: 20120607
  Receipt Date: 20120601
  Transmission Date: 20120825
  Serious: Yes (Other)
  Sender: FDA-Public Use
  Company Number: FR-PFIZER INC-2012094335

PATIENT
  Age: 46 Year
  Sex: Female

DRUGS (5)
  1. LYRICA [Suspect]
     Indication: PARAESTHESIA
  2. LEVOTHYROXINE [Concomitant]
     Dosage: UNK
  3. LYRICA [Suspect]
     Indication: FEELING COLD
     Dosage: 50 MG, 2X/DAY
  4. AGOMELATINE [Concomitant]
     Dosage: UNK
  5. PROPRANOLOL [Concomitant]
     Dosage: UNK

REACTIONS (6)
  - DIPLOPIA [None]
  - VISION BLURRED [None]
  - PALPITATIONS [None]
  - INCREASED APPETITE [None]
  - DRUG EFFECT DECREASED [None]
  - EYE MOVEMENT DISORDER [None]
